FAERS Safety Report 7870841-7 (Version None)
Quarter: 2011Q4

REPORT INFORMATION
  Report Type: 
  Country: None (occurrence: None)
  Receive Date: 20111029
  Receipt Date: 20110222
  Transmission Date: 20120403
  Serious: Yes (Death, Hospitalization)
  Sender: FDA-Public Use
  Company Number: US-AMGEN-USASP2011010368

PATIENT
  Sex: Male

DRUGS (2)
  1. ENBREL [Suspect]
     Indication: RHEUMATOID ARTHRITIS
     Dosage: UNK
  2. PREDNISONE [Concomitant]

REACTIONS (1)
  - NASOPHARYNGITIS [None]
